FAERS Safety Report 21230079 (Version 3)
Quarter: 2022Q4

REPORT INFORMATION
  Report Type: Spontaneous
  Country: US (occurrence: US)
  Receive Date: 20220818
  Receipt Date: 20221018
  Transmission Date: 20230113
  Serious: No
  Sender: FDA-Public Use
  Company Number: US-SA-SAC20220816000674

PATIENT
  Age: 57 Year
  Sex: Male

DRUGS (1)
  1. DUPIXENT [Suspect]
     Active Substance: DUPILUMAB
     Dosage: 300 MG , OTHER
     Route: 058
     Dates: start: 202204

REACTIONS (5)
  - Dandruff [Unknown]
  - COVID-19 [Unknown]
  - Skin swelling [Unknown]
  - Injection site bruising [Unknown]
  - Rash [Unknown]

NARRATIVE: CASE EVENT DATE: 20220101
